FAERS Safety Report 23268903 (Version 1)
Quarter: 2023Q4

REPORT INFORMATION
  Report Type: Report from Study
  Country: US (occurrence: US)
  Receive Date: 20231206
  Receipt Date: 20231206
  Transmission Date: 20240109
  Serious: Yes (Other)
  Sender: FDA-Public Use
  Company Number: US-ABBVIE-5525799

PATIENT
  Sex: Male

DRUGS (1)
  1. VENCLEXTA [Suspect]
     Active Substance: VENETOCLAX
     Indication: Chronic lymphocytic leukaemia
     Dosage: FORM STRENGTH: 100 MILLIGRAMS TABLET?TAKE 4 TABLET(S) BY MOUTH DAILY WITH BREAKFAST
     Route: 048
     Dates: start: 202304

REACTIONS (5)
  - Retinal haemorrhage [Unknown]
  - Hypertension [Unknown]
  - Fatigue [Unknown]
  - Blood triglycerides increased [Unknown]
  - Back pain [Unknown]

NARRATIVE: CASE EVENT DATE: 20230101
